FAERS Safety Report 10058516 (Version 1)
Quarter: 2014Q2

REPORT INFORMATION
  Report Type: Spontaneous
  Country: US (occurrence: US)
  Receive Date: 20140404
  Receipt Date: 20140404
  Transmission Date: 20141212
  Serious: Yes (Other)
  Sender: FDA-Public Use
  Company Number: US-SA-2014SA039939

PATIENT
  Age: 76 Year
  Sex: Male

DRUGS (2)
  1. NASACORT ALLERGY [Suspect]
     Indication: MULTIPLE ALLERGIES
     Dosage: DOSE-2 SPRAYS IEN
     Route: 065
     Dates: start: 20140325, end: 20140326
  2. ANTIHISTAMINES [Concomitant]
     Route: 065
     Dates: start: 20140325

REACTIONS (3)
  - Urinary tract disorder [Not Recovered/Not Resolved]
  - Dysuria [Not Recovered/Not Resolved]
  - Blood urine present [Not Recovered/Not Resolved]
